FAERS Safety Report 5865716-9 (Version None)
Quarter: 2008Q3

REPORT INFORMATION
  Report Type: 
  Country: None (occurrence: None)
  Receive Date: 20080829
  Receipt Date: 20080826
  Transmission Date: 20090109
  Serious: Yes (Death, Hospitalization)
  Sender: FDA-Public Use
  Company Number: LT-JNJFOC-20080804921

PATIENT

DRUGS (2)
  1. ACETAMINOPHEN [Suspect]
     Route: 048
  2. ACETAMINOPHEN [Suspect]
     Indication: DRUG USE FOR UNKNOWN INDICATION
     Route: 048

REACTIONS (4)
  - BRAIN OEDEMA [None]
  - COMPLETED SUICIDE [None]
  - HEPATIC FAILURE [None]
  - INTENTIONAL OVERDOSE [None]
